FAERS Safety Report 17215031 (Version 1)
Quarter: 2019Q4

REPORT INFORMATION
  Report Type: Spontaneous
  Country: JP (occurrence: JP)
  Receive Date: 20191230
  Receipt Date: 20191230
  Transmission Date: 20200122
  Serious: Yes (Hospitalization)
  Sender: FDA-Public Use
  Company Number: JP-EISAI MEDICAL RESEARCH-EC-2019-066947

PATIENT
  Age: 70 Year
  Sex: Male

DRUGS (1)
  1. LENVIMA [Suspect]
     Active Substance: LENVATINIB
     Indication: THYROID CANCER
     Route: 048
     Dates: start: 201806

REACTIONS (3)
  - Nephrotic syndrome [Not Recovered/Not Resolved]
  - Hypokalaemia [Recovered/Resolved]
  - Metabolic alkalosis [Recovered/Resolved]

NARRATIVE: CASE EVENT DATE: 201908
